FAERS Safety Report 26190839 (Version 1)
Quarter: 2025Q4

REPORT INFORMATION
  Report Type: Spontaneous
  Country: MX (occurrence: MX)
  Receive Date: 20251223
  Receipt Date: 20251223
  Transmission Date: 20260117
  Serious: Yes (Hospitalization, Other)
  Sender: SANDOZ
  Company Number: MX-002147023-NVSC2025MX194672

PATIENT
  Age: 83 Year
  Sex: Female

DRUGS (2)
  1. EXELON [Suspect]
     Active Substance: RIVASTIGMINE TARTRATE
     Indication: Product used for unknown indication
     Dosage: 1 DOSAGE FORM, QD
     Dates: start: 20250115
  2. EXELON [Suspect]
     Active Substance: RIVASTIGMINE TARTRATE
     Dosage: 1 DOSAGE FORM, QD

REACTIONS (1)
  - Cerebrovascular accident [Recovering/Resolving]
